FAERS Safety Report 8533994-3 (Version None)
Quarter: 2012Q2

REPORT INFORMATION
  Report Type: 
  Country: None (occurrence: None)
  Receive Date: 20120412
  Receipt Date: 20090212
  Transmission Date: 20120825
  Serious: Yes (Other)
  Sender: FDA-Public Use
  Company Number: PHEH2009US01673

PATIENT
  Sex: Female

DRUGS (1)
  1. CLOZARIL [Suspect]

REACTIONS (3)
  - HYPOTENSION [None]
  - PSYCHIATRIC DECOMPENSATION [None]
  - NONSPECIFIC REACTION [None]
